FAERS Safety Report 4745656-9 (Version None)
Quarter: 2005Q3

REPORT INFORMATION
  Report Type: 
  Country: None (occurrence: None)
  Receive Date: 20050811
  Receipt Date: 20050805
  Transmission Date: 20060218
  Serious: Yes (Hospitalization)
  Sender: FDA-Public Use
  Company Number: 2005-08-0284

PATIENT
  Age: 64 Year
  Sex: Female
  Weight: 64 kg

DRUGS (5)
  1. TEMODAL [Suspect]
     Indication: GLIOBLASTOMA MULTIFORME
     Dosage: 120 MG OD ORAL
     Route: 048
     Dates: start: 20050519, end: 20050617
  2. KEPPRA [Suspect]
     Indication: EPILEPSY
     Dosage: 1G OD ORAL
     Route: 048
     Dates: start: 20050512, end: 20050703
  3. BACTRIM DS [Suspect]
     Indication: PROPHYLAXIS
     Dosage: 3 UNITS PER W ORAL
     Route: 048
     Dates: start: 20050519, end: 20050602
  4. FORTECORTIN [Concomitant]
  5. URBANYL [Concomitant]

REACTIONS (2)
  - PANCYTOPENIA [None]
  - TOXIC SKIN ERUPTION [None]
